FAERS Safety Report 6715287-X (Version None)
Quarter: 2010Q2

REPORT INFORMATION
  Report Type: 
  Country: None (occurrence: None)
  Receive Date: 20100506
  Receipt Date: 20100506
  Transmission Date: 20101027
  Serious: Yes (Other)
  Sender: FDA-Public Use
  Company Number: None

PATIENT
  Age: 56 Year
  Sex: Male
  Weight: 90.7194 kg

DRUGS (2)
  1. DICLOFENAC [Suspect]
     Indication: INFLAMMATION
     Dosage: 2 TABLETS TWICE A DAY 75 MG A PIECE
     Dates: start: 20100417
  2. DICLOFENAC [Suspect]
     Indication: OSTEOARTHRITIS
     Dosage: 2 TABLETS TWICE A DAY 75 MG A PIECE
     Dates: start: 20100417

REACTIONS (5)
  - ABDOMINAL PAIN [None]
  - ASTHENIA [None]
  - DIARRHOEA [None]
  - GASTROINTESTINAL PERFORATION [None]
  - NAUSEA [None]
